FAERS Safety Report 5467676-1 (Version None)
Quarter: 2007Q3

REPORT INFORMATION
  Report Type: 
  Country: None (occurrence: None)
  Receive Date: 20070921
  Receipt Date: 20070910
  Transmission Date: 20080115
  Serious: Yes (Death)
  Sender: FDA-Public Use
  Company Number: US021172

PATIENT
  Age: 83 Year
  Sex: Male

DRUGS (4)
  1. ACTIQ [Suspect]
     Indication: BREAKTHROUGH PAIN
     Dosage: 200 UG BUCCAL
     Route: 002
     Dates: start: 20070201, end: 20070204
  2. ACTIQ [Suspect]
     Indication: CANCER PAIN
     Dosage: 200 UG BUCCAL
     Route: 002
     Dates: start: 20070201, end: 20070204
  3. ACTIQ [Suspect]
     Indication: BREAKTHROUGH PAIN
     Dosage: 400 UG BUCCAL
     Route: 002
     Dates: start: 20070205
  4. ACTIQ [Suspect]
     Indication: CANCER PAIN
     Dosage: 400 UG BUCCAL
     Route: 002
     Dates: start: 20070205

REACTIONS (1)
  - DEATH [None]
